FAERS Safety Report 9681451 (Version 1)
Quarter: 2013Q4

REPORT INFORMATION
  Report Type: Spontaneous
  Country: US (occurrence: US)
  Receive Date: 20131111
  Receipt Date: 20131111
  Transmission Date: 20140711
  Serious: No
  Sender: FDA-Public Use
  Company Number: US-TEVA-418048USA

PATIENT
  Age: 24 Year
  Sex: Female

DRUGS (1)
  1. LOSEASONIQUE [Suspect]
     Indication: CONTRACEPTION
     Route: 048
     Dates: start: 201112, end: 201205

REACTIONS (1)
  - Menometrorrhagia [Recovered/Resolved]
